FAERS Safety Report 6495254-4 (Version None)
Quarter: 2009Q4

REPORT INFORMATION
  Report Type: 
  Country: None (occurrence: None)
  Receive Date: 20091214
  Receipt Date: 20090519
  Transmission Date: 20100525
  Serious: No
  Sender: FDA-Public Use
  Company Number: US-BRISTOL-MYERS SQUIBB COMPANY-14631014

PATIENT
  Age: 33 Year
  Sex: Female

DRUGS (3)
  1. ABILIFY [Suspect]
     Dates: start: 20090101, end: 20090101
  2. XYREM [Suspect]
     Indication: NARCOLEPSY
     Dosage: XYREM 500MG/ML SOLUTION
     Route: 048
  3. XYREM [Suspect]
     Indication: SOMNOLENCE
     Dosage: XYREM 500MG/ML SOLUTION
     Route: 048

REACTIONS (2)
  - DISTURBANCE IN ATTENTION [None]
  - MEMORY IMPAIRMENT [None]
